FAERS Safety Report 11750868 (Version 1)
Quarter: 2015Q4

REPORT INFORMATION
  Report Type: Spontaneous
  Country: US (occurrence: US)
  Receive Date: 20151118
  Receipt Date: 20151118
  Transmission Date: 20160304
  Serious: No
  Sender: FDA-Public Use
  Company Number: US-NOVOPROD-461984

PATIENT
  Age: 24 Year
  Sex: Female

DRUGS (1)
  1. NOVOLOG [Suspect]
     Active Substance: INSULIN ASPART
     Indication: TYPE 1 DIABETES MELLITUS
     Dosage: UNK
     Route: 058
     Dates: start: 201507

REACTIONS (4)
  - Blood glucose increased [Recovered/Resolved]
  - Joint injury [Unknown]
  - Blood glucose fluctuation [Recovered/Resolved]
  - Product quality issue [Recovered/Resolved]
